FAERS Safety Report 9643771 (Version 1)
Quarter: 2013Q4

REPORT INFORMATION
  Report Type: Spontaneous
  Country: GB (occurrence: GB)
  Receive Date: 20131024
  Receipt Date: 20131024
  Transmission Date: 20140711
  Serious: Yes (Other)
  Sender: FDA-Public Use
  Company Number: GB-ACTAVIS-2013-19274

PATIENT
  Age: 23 Year
  Sex: Female

DRUGS (5)
  1. PARACETAMOL (UNKNOWN) [Suspect]
     Indication: MIGRAINE PROPHYLAXIS
     Dosage: UNK
     Route: 065
  2. PARACETAMOL (UNKNOWN) [Suspect]
     Indication: DRUG DEPENDENCE
  3. NUROFEN PLUS [Suspect]
     Indication: MIGRAINE PROPHYLAXIS
     Dosage: UNK UNK, BID
     Route: 048
  4. NUROFEN PLUS [Suspect]
     Indication: DRUG DEPENDENCE
  5. MIGRALEVE /01325801/ [Suspect]
     Indication: MIGRAINE PROPHYLAXIS
     Dosage: UNK
     Route: 065

REACTIONS (1)
  - Drug dependence [Not Recovered/Not Resolved]
